FAERS Safety Report 7490072-2 (Version None)
Quarter: 2011Q2

REPORT INFORMATION
  Report Type: 
  Country: None (occurrence: None)
  Receive Date: 20110519
  Receipt Date: 20101220
  Transmission Date: 20111010
  Serious: Yes (Hospitalization)
  Sender: FDA-Public Use
  Company Number: US-BAYER-201034421NA

PATIENT
  Age: 46 Year
  Sex: Female
  Weight: 77.098 kg

DRUGS (9)
  1. PRILOSEC [Concomitant]
     Dosage: 20 MG, BID
     Route: 048
  2. ANTIBIOTICS [Concomitant]
     Indication: SINUSITIS
  3. ZOCOR [Concomitant]
     Dosage: 20 MG, QD
     Route: 048
  4. VITAMIN C [Concomitant]
  5. IBUPROFEN [Concomitant]
     Dosage: UNK UNK, PRN
  6. MIGRAINE MEDS [Concomitant]
  7. YAZ [Suspect]
     Indication: PRODUCT USED FOR UNKNOWN INDICATION
     Route: 048
     Dates: start: 20070101, end: 20070706
  8. LIPITOR [Concomitant]
     Indication: BLOOD CHOLESTEROL INCREASED
     Dosage: UNK
     Dates: start: 20050101, end: 20090101
  9. NIASPAN [Concomitant]
     Indication: BLOOD CHOLESTEROL INCREASED
     Dosage: UNK
     Dates: start: 20050101

REACTIONS (3)
  - JOINT SWELLING [None]
  - DEEP VEIN THROMBOSIS [None]
  - PAIN IN EXTREMITY [None]
